FAERS Safety Report 10373150 (Version 1)
Quarter: 2014Q3

REPORT INFORMATION
  Report Type: Spontaneous
  Country: US (occurrence: US)
  Receive Date: 20140808
  Receipt Date: 20140808
  Transmission Date: 20150326
  Serious: No
  Sender: FDA-Public Use
  Company Number: US-BRISTOL-MYERS SQUIBB COMPANY-20088977

PATIENT
  Age: 48 Year
  Sex: Female

DRUGS (6)
  1. PHENERGAN [Concomitant]
     Active Substance: PROMETHAZINE HYDROCHLORIDE
  2. SPRYCEL [Suspect]
     Active Substance: DASATINIB
  3. DIAZEPAM. [Concomitant]
     Active Substance: DIAZEPAM
  4. LEVOTHYROXINE [Concomitant]
     Active Substance: LEVOTHYROXINE
  5. GABAPENTIN. [Concomitant]
     Active Substance: GABAPENTIN
  6. LYRICA [Concomitant]
     Active Substance: PREGABALIN

REACTIONS (5)
  - Muscular weakness [Unknown]
  - Bone pain [Unknown]
  - Musculoskeletal pain [Unknown]
  - Fall [Unknown]
  - Muscle spasms [Unknown]
